FAERS Safety Report 20735311 (Version 1)
Quarter: 2022Q2

REPORT INFORMATION
  Report Type: Spontaneous
  Country: JP (occurrence: JP)
  Receive Date: 20220421
  Receipt Date: 20220421
  Transmission Date: 20220720
  Serious: Yes (Other)
  Sender: FDA-Public Use
  Company Number: JP-Clinigen Group PLC/ Clinigen Healthcare Ltd-JP-CLGN-22-00024

PATIENT
  Sex: Male

DRUGS (2)
  1. DEXRAZOXANE [Suspect]
     Active Substance: DEXRAZOXANE
     Indication: Chemotherapy cardiotoxicity attenuation
     Route: 041
     Dates: start: 20220106, end: 20220107
  2. DEXRAZOXANE [Suspect]
     Active Substance: DEXRAZOXANE
     Route: 041
     Dates: start: 20220127, end: 20220128

REACTIONS (1)
  - Off label use [Unknown]
